FAERS Safety Report 6242584-7 (Version None)
Quarter: 2009Q2

REPORT INFORMATION
  Report Type: 
  Country: None (occurrence: None)
  Receive Date: 20090622
  Receipt Date: 20090622
  Transmission Date: 20091009
  Serious: No
  Sender: FDA-Public Use
  Company Number: None

PATIENT
  Age: 60 Year
  Sex: Male
  Weight: 74.8435 kg

DRUGS (1)
  1. NASACORT AQ [Suspect]
     Indication: HYPERSENSITIVITY
     Dosage: AS DIRECTED NASAL (DURATION: ABOUT A WEEK)
     Route: 045

REACTIONS (2)
  - HYPOGEUSIA [None]
  - HYPOSMIA [None]
